FAERS Safety Report 18165624 (Version 2)
Quarter: 2023Q1

REPORT INFORMATION
  Report Type: Spontaneous
  Country: CA (occurrence: None)
  Receive Date: 20200818
  Receipt Date: 20230322
  Transmission Date: 20230418
  Serious: Yes (Death)
  Sender: FDA-Public Use
  Company Number: 2020SF03689

PATIENT
  Age: 90 Year
  Sex: Female

DRUGS (12)
  1. BRILINTA [Suspect]
     Active Substance: TICAGRELOR
     Indication: Infarction
     Route: 048
     Dates: start: 2019, end: 2019
  2. HEPARIN CALCIUM [Suspect]
     Active Substance: HEPARIN CALCIUM
     Indication: Infarction
     Dosage: 500 I/UNITS
     Route: 040
     Dates: start: 2019, end: 2019
  3. HEPARIN CALCIUM [Suspect]
     Active Substance: HEPARIN CALCIUM
     Indication: Infarction
     Dosage: 600 UNITS
     Route: 040
  4. POLYETHYLENE GLYCOL 3350 [Concomitant]
     Active Substance: POLYETHYLENE GLYCOL 3350
  5. RAMIPRIL [Concomitant]
     Active Substance: RAMIPRIL
     Dosage: 15 MG
  6. RISEDRONATE SODIUM [Concomitant]
     Active Substance: RISEDRONATE SODIUM
     Dosage: 35 MG
  7. SERTRALINE [Concomitant]
     Active Substance: SERTRALINE HYDROCHLORIDE
  8. TRAZODONE [Concomitant]
     Active Substance: TRAZODONE HYDROCHLORIDE
     Dosage: 100 MG
  9. TYLENOL [Concomitant]
     Active Substance: ACETAMINOPHEN
  10. CALCIUM\VITAMIN D [Concomitant]
     Active Substance: CALCIUM\VITAMIN D
  11. CALCIUM [Concomitant]
     Active Substance: CALCIUM
     Dosage: 500 BID
  12. ASPIRIN [Concomitant]
     Active Substance: ASPIRIN
     Dosage: 4 TAB 80 MG

REACTIONS (6)
  - Angina pectoris [Fatal]
  - Fall [Fatal]
  - Haemorrhage intracranial [Fatal]
  - Infarction [Fatal]
  - Scan brain [Fatal]
  - Troponin increased [Fatal]

NARRATIVE: CASE EVENT DATE: 20190101
